FAERS Safety Report 6892749-6 (Version None)
Quarter: 2010Q3

REPORT INFORMATION
  Report Type: 
  Country: None (occurrence: None)
  Receive Date: 20100731
  Receipt Date: 20080716
  Transmission Date: 20110219
  Serious: Yes (Hospitalization)
  Sender: FDA-Public Use
  Company Number: US-PFIZER INC-2008059569

PATIENT
  Age: 79 Year
  Sex: Female

DRUGS (2)
  1. NORVASC [Suspect]
     Dosage: BID
     Route: 048
  2. ANTIHYPERTENSIVES [Concomitant]

REACTIONS (2)
  - ASTHENIA [None]
  - DIZZINESS [None]
